FAERS Safety Report 10286479 (Version 3)
Quarter: 2014Q3

REPORT INFORMATION
  Report Type: Spontaneous
  Country: US (occurrence: None)
  Receive Date: 20140707
  Receipt Date: 20140723
  Transmission Date: 20150326
  Serious: Yes (Death, Hospitalization)
  Sender: FDA-Public Use
  Company Number: UNT-2014-003083

PATIENT
  Age: 68 Year
  Sex: Female
  Weight: 90.2 kg

DRUGS (2)
  1. REMODULIN [Suspect]
     Active Substance: TREPROSTINIL
     Indication: COR PULMONALE CHRONIC
     Route: 058
     Dates: start: 20140520
  2. ADCIRCA [Concomitant]
     Active Substance: TADALAFIL

REACTIONS (6)
  - Clostridium difficile infection [None]
  - Pulmonary arterial hypertension [None]
  - Death [None]
  - Sepsis [None]
  - Pneumonia [None]
  - Renal failure acute [None]

NARRATIVE: CASE EVENT DATE: 201406
